FAERS Safety Report 6261320-1 (Version None)
Quarter: 2009Q3

REPORT INFORMATION
  Report Type: 
  Country: None (occurrence: None)
  Receive Date: 20090709
  Receipt Date: 20090629
  Transmission Date: 20100115
  Serious: Yes (Hospitalization, Other)
  Sender: FDA-Public Use
  Company Number: BR-ROCHE-641523

PATIENT
  Sex: Female
  Weight: 105 kg

DRUGS (6)
  1. XENICAL [Suspect]
     Indication: OBESITY
     Dosage: START DATE: 2001 OR 2002
     Route: 048
     Dates: start: 20010101
  2. XENICAL [Suspect]
     Route: 048
     Dates: start: 20050101
  3. XENICAL [Suspect]
     Route: 048
     Dates: start: 20060901, end: 20070101
  4. XENICAL [Suspect]
     Dosage: LOT NO. B294
     Route: 048
     Dates: start: 20090301, end: 20090101
  5. LORAX [Concomitant]
     Indication: ANTIDEPRESSANT THERAPY
     Dosage: STOP DATE: FEB OR MARCH 2009
     Route: 048
     Dates: end: 20090201
  6. MICROVLAR [Concomitant]
     Indication: CONTRACEPTION

REACTIONS (5)
  - OSTEOMYELITIS [None]
  - ROAD TRAFFIC ACCIDENT [None]
  - THERAPEUTIC RESPONSE DECREASED [None]
  - TIBIA FRACTURE [None]
  - VARICOSE ULCERATION [None]
